FAERS Safety Report 5552717-3 (Version None)
Quarter: 2007Q4

REPORT INFORMATION
  Report Type: 
  Country: None (occurrence: None)
  Receive Date: 20071212
  Receipt Date: 20070622
  Transmission Date: 20080405
  Serious: No
  Sender: FDA-Public Use
  Company Number: US-AMGEN-KDL230769

PATIENT
  Sex: Female

DRUGS (6)
  1. ENBREL [Suspect]
     Indication: RHEUMATOID ARTHRITIS
     Dates: start: 20070503, end: 20070614
  2. METHOTREXATE [Concomitant]
  3. PLAQUENIL [Concomitant]
  4. XANAX [Concomitant]
  5. CLONAZEPAM [Concomitant]
  6. FOLIC ACID [Concomitant]

REACTIONS (2)
  - HYPOAESTHESIA [None]
  - PAIN IN EXTREMITY [None]
